FAERS Safety Report 12254025 (Version 2)
Quarter: 2020Q1

REPORT INFORMATION
  Report Type: Report from Study
  Country: CO (occurrence: CO)
  Receive Date: 20160411
  Receipt Date: 20200128
  Transmission Date: 20200409
  Serious: Yes (Death, Hospitalization)
  Sender: FDA-Public Use
  Company Number: CO-JNJFOC-20160408593

PATIENT
  Age: 57 Year
  Sex: Male
  Weight: 72 kg

DRUGS (1)
  1. RISPERDAL CONSTA [Suspect]
     Active Substance: RISPERIDONE
     Indication: SCHIZOPHRENIA
     Route: 030
     Dates: start: 20151030

REACTIONS (4)
  - Adverse event [Fatal]
  - Asthenia [Fatal]
  - Acute respiratory distress syndrome [Fatal]
  - Oedema [Fatal]

NARRATIVE: CASE EVENT DATE: 20160330
